FAERS Safety Report 4669918-9 (Version None)
Quarter: 2005Q2

REPORT INFORMATION
  Report Type: 
  Country: None (occurrence: None)
  Receive Date: 20050523
  Receipt Date: 20050518
  Transmission Date: 20051028
  Serious: Yes (Life-Threatening, Hospitalization)
  Sender: FDA-Public Use
  Company Number: 05USA0117

PATIENT
  Age: 74 Year
  Sex: Female
  Weight: 53.1 kg

DRUGS (10)
  1. AGGRASTAT [Suspect]
     Indication: CORONARY ANGIOPLASTY
     Dosage: 0.25 UG/KG BOLUS; 0.15 UG/KG/MIN INFUSION
     Route: 040
     Dates: start: 20050427, end: 20050427
  2. ABCIXIMAB (ABCIXIMAB) (INJECTION) [Suspect]
     Indication: CORONARY ANGIOPLASTY
     Dosage: 0.25 MG/KG BOLUS; 0.125 UG/KG/MIN INFUSION
     Route: 040
     Dates: start: 20050427, end: 20050427
  3. BIVALIRUDIN (BIVALIRUDIN) (INJECTION) [Suspect]
     Indication: CORONARY ANGIOPLASTY
     Dosage: 0.75 MG/KG BOLUS; 1.75 MG/KG/HR INFUSION
     Route: 040
     Dates: start: 20050427, end: 20050427
  4. HEPARIN [Suspect]
     Indication: CORONARY ANGIOPLASTY
     Dosage: 50 IU KG BOLUS AND REPEAT DOSING
     Route: 040
     Dates: start: 20050427, end: 20050427
  5. HEPARIN [Suspect]
     Indication: CORONARY ANGIOPLASTY
     Dosage: DF
     Dates: start: 20050427, end: 20050427
  6. PLACEBO FOR BIVALIRUDIN (PLACEBO) (INJECTION) [Suspect]
     Indication: CORONARY ANGIOPLASTY
     Dosage: DF
     Dates: start: 20050427, end: 20050427
  7. AGGRASTAT [Suspect]
     Indication: CORONARY ANGIOPLASTY
     Dosage: DF
     Dates: start: 20050427, end: 20050427
  8. PLACEBO FOR ABCIXIMAB (PLACEBO) (INJECTION) [Suspect]
     Indication: CORONARY ANGIOPLASTY
     Dosage: DF
     Dates: start: 20050427, end: 20050427
  9. CLOPIDOGREL BISULFATE [Concomitant]
  10. PRE RAND LOW MOLECULAR WEIGHT HEPARIN (HEPARIN) (INJECTION) [Concomitant]

REACTIONS (4)
  - HAEMATOCRIT DECREASED [None]
  - HAEMOGLOBIN DECREASED [None]
  - HYPOTENSION [None]
  - POST PROCEDURAL COMPLICATION [None]
